FAERS Safety Report 25668871 (Version 1)
Quarter: 2025Q3

REPORT INFORMATION
  Report Type: Spontaneous
  Country: US (occurrence: US)
  Receive Date: 20250812
  Receipt Date: 20250812
  Transmission Date: 20251020
  Serious: No
  Sender: RECKITT BENCKISER
  Company Number: US-PROD-AS2-212756134-20-24-USA-RB-0015638

PATIENT
  Age: 86 Year
  Sex: Female
  Weight: 58.967 kg

DRUGS (2)
  1. MUCINEX [Suspect]
     Active Substance: GUAIFENESIN
     Indication: Cough
     Dosage: 2 DF, BID
     Route: 048
     Dates: start: 20241220, end: 20241221
  2. MUCINEX [Suspect]
     Active Substance: GUAIFENESIN
     Indication: Sneezing

REACTIONS (4)
  - Restlessness [Recovered/Resolved]
  - Musculoskeletal discomfort [Recovered/Resolved]
  - Insomnia [Recovered/Resolved]
  - Drug effective for unapproved indication [Recovered/Resolved]

NARRATIVE: CASE EVENT DATE: 20241220
